FAERS Safety Report 5578294-9 (Version None)
Quarter: 2007Q4

REPORT INFORMATION
  Report Type: 
  Country: None (occurrence: None)
  Receive Date: 20071231
  Receipt Date: 20071219
  Transmission Date: 20080405
  Serious: Yes (Hospitalization, Disabling)
  Sender: FDA-Public Use
  Company Number: JP-PFIZER INC-2007107865

PATIENT
  Age: 72 Year
  Sex: Female

DRUGS (5)
  1. AZULFIDINE EN-TABS [Suspect]
     Indication: RHEUMATOID ARTHRITIS
     Dosage: DAILY DOSE:1000MG
     Route: 048
     Dates: start: 20060501, end: 20061101
  2. GASTER [Concomitant]
     Route: 048
  3. AMARYL [Concomitant]
     Route: 048
     Dates: start: 20060501
  4. ALENDRONATE SODIUM [Concomitant]
     Route: 048
     Dates: start: 20060501
  5. PREDNISOLONE [Concomitant]
     Route: 048
     Dates: start: 20060501

REACTIONS (1)
  - LEUKOENCEPHALOPATHY [None]
